FAERS Safety Report 19078655 (Version 1)
Quarter: 2021Q1

REPORT INFORMATION
  Report Type: Spontaneous
  Country: DE (occurrence: DE)
  Receive Date: 20210331
  Receipt Date: 20210331
  Transmission Date: 20210420
  Serious: Yes (Life-Threatening, Other)
  Sender: FDA-Public Use
  Company Number: DE-OTSUKA-2021_010418

PATIENT
  Age: 28 Year
  Sex: Female

DRUGS (2)
  1. ABILIFY [Suspect]
     Active Substance: ARIPIPRAZOLE
     Indication: SCHIZOPHRENIA
     Dosage: UNK UNK, BID
     Route: 065
     Dates: start: 2012, end: 2013
  2. ABILIFY [Suspect]
     Active Substance: ARIPIPRAZOLE
     Indication: PSYCHOTIC DISORDER

REACTIONS (14)
  - Myocardial infarction [Unknown]
  - Tachycardia [Not Recovered/Not Resolved]
  - Inappropriate schedule of product administration [Unknown]
  - Renal disorder [Unknown]
  - Headache [Unknown]
  - Tremor [Unknown]
  - Migraine [Not Recovered/Not Resolved]
  - Pain [Unknown]
  - Restlessness [Unknown]
  - Product use in unapproved indication [Unknown]
  - Cardiac disorder [Not Recovered/Not Resolved]
  - Visual impairment [Not Recovered/Not Resolved]
  - Maternal exposure during pregnancy [Unknown]
  - Liver disorder [Not Recovered/Not Resolved]

NARRATIVE: CASE EVENT DATE: 2012
